FAERS Safety Report 17048261 (Version 1)
Quarter: 2019Q4

REPORT INFORMATION
  Report Type: Spontaneous
  Country: US (occurrence: US)
  Receive Date: 20191118
  Receipt Date: 20191118
  Transmission Date: 20200122
  Serious: Yes (Hospitalization)
  Sender: FDA-Public Use
  Company Number: None

PATIENT
  Age: 10 Year
  Sex: Male
  Weight: 31 kg

DRUGS (4)
  1. PEDIASURE [Concomitant]
     Active Substance: VITAMINS
  2. HYDROXYZINE 50MG [Concomitant]
  3. ARIPIPRAZOLE. [Suspect]
     Active Substance: ARIPIPRAZOLE
     Indication: MAJOR DEPRESSION
     Route: 048
     Dates: start: 20191112, end: 20191114
  4. CLONIDINE 0.1MG [Concomitant]
     Active Substance: CLONIDINE

REACTIONS (7)
  - Joint stiffness [None]
  - Musculoskeletal stiffness [None]
  - Hyperhidrosis [None]
  - Emotional distress [None]
  - Crying [None]
  - Oculogyric crisis [None]
  - Opisthotonus [None]

NARRATIVE: CASE EVENT DATE: 20191114
